FAERS Safety Report 4693588-7 (Version None)
Quarter: 2005Q2

REPORT INFORMATION
  Report Type: 
  Country: None (occurrence: None)
  Receive Date: 20050615
  Receipt Date: 20050531
  Transmission Date: 20051028
  Serious: Yes (Death)
  Sender: FDA-Public Use
  Company Number: 000#8#2005-00421

PATIENT
  Age: 2 Day
  Sex: Female

DRUGS (1)
  1. ALPROSTADIL [Suspect]

REACTIONS (2)
  - SHOCK [None]
  - VASODILATATION [None]
